FAERS Safety Report 7830780-4 (Version None)
Quarter: 2011Q4

REPORT INFORMATION
  Report Type: 
  Country: None (occurrence: None)
  Receive Date: 20111021
  Receipt Date: 20111018
  Transmission Date: 20120403
  Serious: Yes (Hospitalization)
  Sender: FDA-Public Use
  Company Number: US-GLAXOSMITHKLINE-A0932788A

PATIENT
  Age: 80 Year
  Sex: Male

DRUGS (1)
  1. VOTRIENT [Suspect]
     Indication: RENAL CANCER
     Dosage: 800MG PER DAY
     Route: 065

REACTIONS (5)
  - HYPERTENSION [None]
  - DIARRHOEA [None]
  - CONSTIPATION [None]
  - BLOOD PRESSURE INCREASED [None]
  - HEADACHE [None]
